FAERS Safety Report 8325511-8 (Version None)
Quarter: 2012Q2

REPORT INFORMATION
  Report Type: 
  Country: None (occurrence: None)
  Receive Date: 20120501
  Receipt Date: 20120420
  Transmission Date: 20120825
  Serious: Yes (Hospitalization)
  Sender: FDA-Public Use
  Company Number: GB-NOVOPROD-345240

PATIENT
  Age: 70 Year
  Sex: Female
  Weight: 98 kg

DRUGS (2)
  1. VICTOZA [Suspect]
     Indication: TYPE 2 DIABETES MELLITUS
     Dosage: 0.6 MG, QD
     Dates: start: 20110126, end: 20110201
  2. VICTOZA [Suspect]
     Dosage: 1.2 MG, UNK
     Dates: start: 20110202, end: 20110831

REACTIONS (8)
  - RENAL FAILURE ACUTE [None]
  - URINARY TRACT INFECTION [None]
  - HYPOTENSION [None]
  - DEHYDRATION [None]
  - NAUSEA [None]
  - DIARRHOEA [None]
  - FLATULENCE [None]
  - VOMITING [None]
